FAERS Safety Report 14567579 (Version 3)
Quarter: 2018Q2

REPORT INFORMATION
  Report Type: Spontaneous
  Country: SK (occurrence: SK)
  Receive Date: 20180223
  Receipt Date: 20180412
  Transmission Date: 20180711
  Serious: Yes (Other)
  Sender: FDA-Public Use
  Company Number: SK-MYLANLABS-2018M1011810

PATIENT
  Age: 68 Year
  Sex: Female

DRUGS (8)
  1. BEVACIZUMAB. [Suspect]
     Active Substance: BEVACIZUMAB
     Dosage: UNK UNK, CYCLE (UNK, CYCLIC (REINDUCTION OF XELOX REGIMEN WITH BEVACIZUMAB), FOR 4 MONTHS)
     Dates: end: 201606
  2. CAPECITABINE. [Suspect]
     Active Substance: CAPECITABINE
     Dosage: UNK, CYCLE (UNK, CYCLIC (REINDUCTION OF XELOX REGIMEN WITH BEVACIZUMAB) FOR 4 MONTHS)
     Dates: end: 201606
  3. BEVACIZUMAB. [Suspect]
     Active Substance: BEVACIZUMAB
     Indication: COLORECTAL CANCER METASTATIC
     Dosage: UNK UNK, CYCLE (UNK, CYCLIC WITH OXALIPLATIN AND CAPECITABINE (XELOX REGIMEN), FOR 6 CYCLES)
     Dates: start: 201503
  4. CAPECITABINE. [Suspect]
     Active Substance: CAPECITABINE
     Indication: COLORECTAL CANCER METASTATIC
     Dosage: UNK UNK, CYCLE (UNK, CYCLIC 1ST LINE WITH CAPECITABINE (XELOX REGIMEN), FOR 6 CYCLES)
     Dates: start: 201503
  5. OXALIPLATIN. [Suspect]
     Active Substance: OXALIPLATIN
     Indication: COLORECTAL CANCER METASTATIC
     Dosage: UNK UNK, CYCLE (UNK, CYCLIC 1ST LINE WITH CAPECITABINE (XELOX REGIMEN))
     Dates: start: 201503
  6. BEVACIZUMAB. [Suspect]
     Active Substance: BEVACIZUMAB
     Dosage: UNK UNK, CYCLE (UNK, CYCLIC WITH CAPECITABINE), FOR 6 MONTHS)
     Dates: end: 201602
  7. CAPECITABINE. [Suspect]
     Active Substance: CAPECITABINE
     Dosage: UNK, CYCLE (UNK UNK, CYCLIC (WITH BEVACIZUMAB), FOR 6 MONTHS)
     Dates: end: 201602
  8. OXALIPLATIN. [Suspect]
     Active Substance: OXALIPLATIN
     Dosage: UNK UNK, CYCLE (UNK, CYCLIC (REINDUCTION OF XELOX REGIMEN WITH BEVACIZUMAB) FOR 4 MONTHS)
     Dates: end: 201606

REACTIONS (3)
  - Neoplasm progression [Unknown]
  - Neuropathy peripheral [Unknown]
  - Thrombocytopenia [Unknown]

NARRATIVE: CASE EVENT DATE: 20160601
